FAERS Safety Report 14119973 (Version 2)
Quarter: 2017Q4

REPORT INFORMATION
  Report Type: Spontaneous
  Country: US (occurrence: US)
  Receive Date: 20171024
  Receipt Date: 20171026
  Transmission Date: 20180321
  Serious: No
  Sender: FDA-Public Use
  Company Number: US-NEUROCRINE BIOSCIENCES INC.-2017NBI00652

PATIENT
  Age: 46 Year
  Sex: Female
  Weight: 90.8 kg

DRUGS (8)
  1. DIVALPROEX ER [Concomitant]
     Active Substance: DIVALPROEX SODIUM
  2. TOPAMAX [Concomitant]
     Active Substance: TOPIRAMATE
  3. INGREZZA [Suspect]
     Active Substance: VALBENAZINE
     Indication: TARDIVE DYSKINESIA
     Dosage: AT NIGHT
     Route: 048
     Dates: start: 20170807, end: 20170813
  4. DEPAKOTE ER [Concomitant]
     Active Substance: DIVALPROEX SODIUM
  5. SKELAXIN [Concomitant]
     Active Substance: METAXALONE
  6. INGREZZA [Suspect]
     Active Substance: VALBENAZINE
     Dosage: AT BEDTIME
     Route: 048
     Dates: start: 20170817
  7. DIHYDROERGOTAMINE MESYLATE. [Concomitant]
     Active Substance: DIHYDROERGOTAMINE MESYLATE
     Indication: MIGRAINE
  8. CLONAZEPAM. [Concomitant]
     Active Substance: CLONAZEPAM
     Dosage: 1/2 TAB
     Route: 048

REACTIONS (11)
  - Hypoaesthesia [Recovered/Resolved]
  - Vision blurred [Unknown]
  - Drug ineffective [None]
  - Migraine [Unknown]
  - Tardive dyskinesia [Unknown]
  - Skin lesion [Not Recovered/Not Resolved]
  - Balance disorder [Unknown]
  - Paraesthesia [Recovered/Resolved]
  - Rash pruritic [Not Recovered/Not Resolved]
  - Drug effect decreased [Unknown]
  - Photophobia [Unknown]

NARRATIVE: CASE EVENT DATE: 2017
